FAERS Safety Report 10506586 (Version 2)
Quarter: 2014Q4

REPORT INFORMATION
  Report Type: Spontaneous
  Country: DE (occurrence: None)
  Receive Date: 20141007
  Receipt Date: 20141010
  Transmission Date: 20150528
  Serious: Yes (Death, Hospitalization)
  Sender: FDA-Public Use
  Company Number: 7325259

PATIENT
  Age: 65 Year
  Sex: Female

DRUGS (2)
  1. EUTHYROX (LEVOTHYROXINE SODIUM) (LEVOTHYROXINE SODIUM) [Suspect]
     Active Substance: LEVOTHYROXINE SODIUM
     Indication: PRODUCT USED FOR UNKNOWN INDICATION
     Route: 048
     Dates: start: 200112
  2. HALDOL (HALOPERIDOL) [Concomitant]

REACTIONS (3)
  - Angina pectoris [None]
  - Death [None]
  - Coronary artery stenosis [None]
